FAERS Safety Report 6163019-9 (Version None)
Quarter: 2009Q2

REPORT INFORMATION
  Report Type: 
  Country: None (occurrence: None)
  Receive Date: 20090420
  Receipt Date: 20090402
  Transmission Date: 20091009
  Serious: Yes (Hospitalization)
  Sender: FDA-Public Use
  Company Number: ADE# 09-008DPR

PATIENT
  Sex: Male
  Weight: 106.5953 kg

DRUGS (2)
  1. DIGOXIN [Suspect]
     Indication: CARDIAC FAILURE
     Dosage: ONE TABLET DAILY
  2. SAME DRUGS FOR YEARS [Concomitant]

REACTIONS (3)
  - DYSPNOEA [None]
  - NAUSEA [None]
  - SLUGGISHNESS [None]
